FAERS Safety Report 9013047 (Version 1)
Quarter: 2013Q1

REPORT INFORMATION
  Report Type: Spontaneous
  Country: US (occurrence: US)
  Receive Date: 20130114
  Receipt Date: 20130114
  Transmission Date: 20140127
  Serious: No
  Sender: FDA-Public Use
  Company Number: US-PFIZER INC-2013011896

PATIENT
  Age: 64 Year
  Sex: Male
  Weight: 73.47 kg

DRUGS (4)
  1. LYRICA [Suspect]
     Indication: NEUROPATHY PERIPHERAL
     Dosage: 50 MG, 2X/DAY
     Route: 048
     Dates: start: 201101
  2. LYRICA [Suspect]
     Dosage: 50 MG, 2X/DAY
     Route: 048
  3. LYRICA [Suspect]
     Dosage: 100 MG, 2X/DAY
     Route: 048
  4. LEXAPRO [Suspect]
     Indication: ANXIETY
     Dosage: 10 MG, DAILY
     Dates: start: 2012

REACTIONS (3)
  - Burning sensation [Unknown]
  - Insomnia [Unknown]
  - Anxiety [Unknown]
